FAERS Safety Report 7788402-7 (Version None)
Quarter: 2011Q3

REPORT INFORMATION
  Report Type: 
  Country: None (occurrence: None)
  Receive Date: 20110930
  Receipt Date: 20110926
  Transmission Date: 20111222
  Serious: Yes (Death, Other)
  Sender: FDA-Public Use
  Company Number: IT-CELGENEUS-083-C5013-11021435

PATIENT
  Sex: Male
  Weight: 65 kg

DRUGS (10)
  1. CC-5013 [Suspect]
     Indication: MULTIPLE MYELOMA
     Route: 048
     Dates: start: 20070503, end: 20080207
  2. MELPHALAN HYDROCHLORIDE [Suspect]
     Indication: MULTIPLE MYELOMA
     Route: 065
     Dates: start: 20070503, end: 20080207
  3. PLACEBO FOR CC-5013 [Suspect]
     Indication: MULTIPLE MYELOMA
     Route: 048
  4. IRBESARTAN [Concomitant]
     Indication: HYPERTENSION
     Route: 048
     Dates: start: 20020101
  5. PREDNISONE [Suspect]
     Indication: MULTIPLE MYELOMA
     Route: 065
     Dates: start: 20070503, end: 20080203
  6. ACETAMINOPHEN W/ CODEINE [Concomitant]
     Indication: BACK PAIN
     Route: 048
     Dates: start: 20070401
  7. CIPROFLOXACIN [Concomitant]
     Indication: INFECTION PROPHYLAXIS
     Route: 065
     Dates: start: 20010904
  8. ATENOLOL [Concomitant]
     Indication: HYPERTENSION
     Route: 048
     Dates: start: 20020101
  9. LANSOPRAZOL [Concomitant]
     Route: 048
  10. CALOIC NADROPARINE [Concomitant]
     Route: 065
     Dates: start: 20080212

REACTIONS (3)
  - POST PROCEDURAL COMPLICATION [None]
  - DRUG EFFECT DECREASED [None]
  - RECTAL CANCER [None]
